FAERS Safety Report 8274934-4 (Version None)
Quarter: 2012Q1

REPORT INFORMATION
  Report Type: 
  Country: None (occurrence: None)
  Receive Date: 20120309
  Receipt Date: 20110513
  Transmission Date: 20120608
  Serious: Yes (Other)
  Sender: FDA-Public Use
  Company Number: TH-2011-00132

PATIENT
  Age: 55 Year
  Sex: Male

DRUGS (3)
  1. UNSPECIFIED ACQUIRED IMMUNE DEFICIENCY SYNDROME MEDICATIONS [Concomitant]
  2. EGRIFTA [Suspect]
     Indication: LIPODYSTROPHY ACQUIRED
     Dosage: 1 IN 1 D, SUBCUTANEOUS
     Route: 058
     Dates: start: 20110401
  3. BYSTOLIC [Concomitant]

REACTIONS (3)
  - HYPOTENSION [None]
  - VISION BLURRED [None]
  - INJECTION SITE PAIN [None]
